FAERS Safety Report 6176546-5 (Version None)
Quarter: 2009Q2

REPORT INFORMATION
  Report Type: 
  Country: None (occurrence: None)
  Receive Date: 20090501
  Receipt Date: 20090430
  Transmission Date: 20091009
  Serious: No
  Sender: FDA-Public Use
  Company Number: US-B.I. PHARMACEUTICALS,INC./RIDGEFIELD-2009-BP-05434BP

PATIENT
  Sex: Male

DRUGS (3)
  1. MOBIC [Suspect]
     Indication: PAIN
     Dosage: 7.5MG
     Route: 048
     Dates: start: 20090301
  2. ASPIRIN [Concomitant]
     Indication: PROPHYLAXIS
  3. REFLUX PAIN DRUG [Concomitant]
     Indication: GASTROOESOPHAGEAL REFLUX DISEASE

REACTIONS (3)
  - BURNING SENSATION [None]
  - RASH [None]
  - RASH PUSTULAR [None]
